FAERS Safety Report 4548174-6 (Version None)
Quarter: 2005Q1

REPORT INFORMATION
  Report Type: 
  Country: None (occurrence: None)
  Receive Date: 20050110
  Receipt Date: 20041122
  Transmission Date: 20050727
  Serious: Yes (Other)
  Sender: FDA-Public Use
  Company Number: 200421779GDDC

PATIENT
  Age: 53 Year
  Sex: Female
  Weight: 59 kg

DRUGS (5)
  1. LANTUS [Suspect]
     Indication: DIABETES MELLITUS
     Dosage: DOSE UNIT: UNITS
     Route: 058
     Dates: start: 20030228
  2. DICLOFENAC [Concomitant]
     Indication: PAIN
     Route: 048
     Dates: start: 20030410, end: 20031003
  3. METFORMIN HCL [Concomitant]
     Indication: DIABETES MELLITUS
     Route: 048
     Dates: start: 20030512
  4. ASPIRIN [Concomitant]
     Route: 048
     Dates: start: 20031003
  5. CO-CODAMOL [Concomitant]
     Indication: PAIN
     Dosage: DOSE: 30/500
     Route: 048
     Dates: start: 20031003

REACTIONS (8)
  - BLINDNESS TRANSIENT [None]
  - HEADACHE [None]
  - HOT FLUSH [None]
  - HYPERHIDROSIS [None]
  - PARAESTHESIA [None]
  - PARAESTHESIA ORAL [None]
  - PARALYSIS [None]
  - TREATMENT NONCOMPLIANCE [None]
